FAERS Safety Report 23410009 (Version 1)
Quarter: 2024Q1

REPORT INFORMATION
  Report Type: Spontaneous
  Country: US (occurrence: None)
  Receive Date: 20240116
  Receipt Date: 20240116
  Transmission Date: 20240409
  Serious: No
  Sender: FDA-Public Use
  Company Number: None

PATIENT
  Sex: Female

DRUGS (3)
  1. INLYTA [Suspect]
     Active Substance: AXITINIB
     Indication: Product used for unknown indication
     Dosage: FREQUENCY : TWICE A DAY;?
     Route: 048
     Dates: start: 202306
  2. INLYTA [Suspect]
     Active Substance: AXITINIB
     Indication: Metastases to lung
  3. INLYTA [Suspect]
     Active Substance: AXITINIB
     Indication: Oropharyngeal cancer

REACTIONS (2)
  - Drug ineffective [None]
  - Therapy cessation [None]
